FAERS Safety Report 6601760 (Version 1)
Quarter: 2020Q3

REPORT INFORMATION
  Report Type: Report from Study
  Country: JM (occurrence: JM)
  Receive Date: 20080331
  Receipt Date: 20080331
  Transmission Date: 20201104
  Serious: Yes (Death)
  Sender: FDA-Public Use
  Company Number: JM-ROCHE-404143

PATIENT
  Age: 19 Year
  Sex: Male

DRUGS (4)
  1. IBANDRONIC ACID. [Suspect]
     Active Substance: IBANDRONIC ACID
     Indication: BONE CANCER METASTATIC
     Route: 065
     Dates: start: 200501, end: 20050328
  2. VALDECOXIB [Concomitant]
     Active Substance: VALDECOXIB
     Indication: PAIN
     Dates: end: 20050328
  3. MORPHINE SULFATE. [Concomitant]
     Active Substance: MORPHINE SULFATE
     Indication: BONE PAIN
     Dosage: TRADE NAME WAS REPORTED AS MORPHINE SULPHATE ER
     Dates: end: 20050328
  4. PARACETAMOL [Concomitant]
     Active Substance: ACETAMINOPHEN
     Indication: PAIN
     Dates: end: 20050328

REACTIONS (1)
  - Death [Fatal]

NARRATIVE: CASE EVENT DATE: 20050328
